FAERS Safety Report 18046622 (Version 1)
Quarter: 2020Q3

REPORT INFORMATION
  Report Type: Report from Study
  Country: JP (occurrence: JP)
  Receive Date: 20200721
  Receipt Date: 20200721
  Transmission Date: 20201103
  Serious: Yes (Other)
  Sender: FDA-Public Use
  Company Number: JP-CELLTRION INC.-2020JP024416

PATIENT

DRUGS (3)
  1. RIMATIL [Concomitant]
     Active Substance: BUCILLAMINE
     Indication: PSORIATIC ARTHROPATHY
     Dosage: UNK
     Dates: start: 20130509
  2. INFLIXIMAB BS FOR I.V. INFUSION100 MG [NK] [Suspect]
     Active Substance: INFLIXIMAB
     Indication: PSORIATIC ARTHROPATHY
     Dosage: 600 MG, QD (EVERY ADMINISTRATION DATE)
     Route: 041
     Dates: start: 20190829, end: 20190829
  3. METHOTREXATE. [Concomitant]
     Active Substance: METHOTREXATE
     Indication: PSORIATIC ARTHROPATHY
     Dosage: UNK
     Dates: start: 20130214

REACTIONS (2)
  - Overdose [Unknown]
  - Squamous cell carcinoma of skin [Recovered/Resolved]

NARRATIVE: CASE EVENT DATE: 20191024
